FAERS Safety Report 9475343 (Version 1)
Quarter: 2013Q3

REPORT INFORMATION
  Report Type: Spontaneous
  Country: US (occurrence: US)
  Receive Date: 20130826
  Receipt Date: 20130826
  Transmission Date: 20140515
  Serious: No
  Sender: FDA-Public Use
  Company Number: US-BIOGENIDEC-2013BI076612

PATIENT
  Sex: Male

DRUGS (1)
  1. TYSABRI [Suspect]
     Indication: MULTIPLE SCLEROSIS
     Route: 042
     Dates: start: 20111115

REACTIONS (11)
  - Ear infection [Unknown]
  - Sleep disorder [Unknown]
  - Disorientation [Unknown]
  - Memory impairment [Unknown]
  - Cognitive disorder [Unknown]
  - Visual impairment [Unknown]
  - Vein disorder [Unknown]
  - Headache [Unknown]
  - Malaise [Unknown]
  - Sinusitis [Unknown]
  - Fatigue [Unknown]
